FAERS Safety Report 24556031 (Version 1)
Quarter: 2024Q4

REPORT INFORMATION
  Report Type: Spontaneous
  Country: CH (occurrence: CH)
  Receive Date: 20241028
  Receipt Date: 20241028
  Transmission Date: 20250114
  Serious: Yes (Other)
  Sender: ROCHE
  Company Number: CH-ROCHE-10000109744

PATIENT

DRUGS (3)
  1. TECENTRIQ [Suspect]
     Active Substance: ATEZOLIZUMAB
     Indication: Metastases to central nervous system
     Route: 065
  2. COTELLIC [Suspect]
     Active Substance: COBIMETINIB
     Indication: Metastases to central nervous system
     Route: 065
  3. ZELBORAF [Suspect]
     Active Substance: VEMURAFENIB
     Indication: Metastases to central nervous system
     Route: 065

REACTIONS (1)
  - Disease progression [Unknown]
